FAERS Safety Report 17896300 (Version 2)
Quarter: 2020Q3

REPORT INFORMATION
  Report Type: Spontaneous
  Country: US (occurrence: US)
  Receive Date: 20200615
  Receipt Date: 20200713
  Transmission Date: 20201103
  Serious: Yes (Death)
  Sender: FDA-Public Use
  Company Number: US-AKORN PHARMACEUTICALS-2020AKN00749

PATIENT
  Age: 19 Year
  Sex: Female
  Weight: 61.22 kg

DRUGS (6)
  1. MYORISAN [Suspect]
     Active Substance: ISOTRETINOIN
     Dosage: 40 MG, 2X/DAY 1.3 MG/KG/DAY
     Route: 048
     Dates: start: 20191205, end: 20200206
  2. MYORISAN [Suspect]
     Active Substance: ISOTRETINOIN
     Dosage: 40 MG, 1X/DAY 0.65 MG/KG/DAY
     Dates: start: 20191007, end: 20191106
  3. MYORISAN [Suspect]
     Active Substance: ISOTRETINOIN
     Indication: ACNE CYSTIC
     Dosage: UNK
     Dates: start: 20190906, end: 20200206
  4. ISOTRETINOIN. [Suspect]
     Active Substance: ISOTRETINOIN
     Dosage: 20 MG, 1X/DAYIN THE EVENING, TOTAL DAILY DOSE OF 60 MG, 0.98 MG/KG/DAY
     Route: 048
     Dates: start: 20191107, end: 20191204
  5. MYORISAN [Suspect]
     Active Substance: ISOTRETINOIN
     Dosage: 40 MG, 1X/DAY IN THE MORNING, TOTAL DAILY DOSE OF 60 MG, 0.98 MG/KG/DAY
     Route: 048
     Dates: start: 20191107, end: 20191204
  6. ISOTRETINOIN. [Suspect]
     Active Substance: ISOTRETINOIN
     Indication: ACNE CYSTIC
     Dosage: 20 MG, 1X/DAY 0.33 MG/KG/DAY
     Route: 048
     Dates: start: 20190905, end: 20191006

REACTIONS (5)
  - Off label use [Recovered/Resolved]
  - Pyrexia [Unknown]
  - Illness [Unknown]
  - Death [Fatal]
  - Drug ineffective [Recovered/Resolved]

NARRATIVE: CASE EVENT DATE: 20190905
